FAERS Safety Report 19062330 (Version 1)
Quarter: 2021Q1

REPORT INFORMATION
  Report Type: Spontaneous
  Country: US (occurrence: US)
  Receive Date: 20210326
  Receipt Date: 20210326
  Transmission Date: 20210420
  Serious: Yes (Hospitalization)
  Sender: FDA-Public Use
  Company Number: US-JNJFOC-20210339141

PATIENT
  Sex: Male
  Weight: 92.16 kg

DRUGS (1)
  1. XARELTO [Suspect]
     Active Substance: RIVAROXABAN
     Indication: THROMBOSIS
     Route: 048

REACTIONS (7)
  - Dyspnoea [Recovered/Resolved]
  - Haemoglobin decreased [Recovered/Resolved]
  - Hypotension [Recovered/Resolved]
  - Lethargy [Recovered/Resolved]
  - Feeling abnormal [Recovered/Resolved]
  - Chest discomfort [Recovered/Resolved]
  - Disturbance in attention [Recovered/Resolved]
